FAERS Safety Report 9170784 (Version 3)
Quarter: 2013Q2

REPORT INFORMATION
  Report Type: Spontaneous
  Country: US (occurrence: US)
  Receive Date: 20130319
  Receipt Date: 20130509
  Transmission Date: 20140414
  Serious: No
  Sender: FDA-Public Use
  Company Number: US-PFIZER INC-2013089086

PATIENT
  Age: 87 Year
  Sex: Female
  Weight: 59.8 kg

DRUGS (3)
  1. ADVIL [Suspect]
     Indication: PAIN
     Dosage: 200 MG, ONCE A DAY
     Route: 048
     Dates: start: 201303, end: 201303
  2. ADVIL PM [Suspect]
     Indication: PAIN
     Dosage: UNK, ONCE A DAY
     Route: 048
     Dates: start: 20130313, end: 20130315
  3. ADVIL PM [Suspect]
     Indication: INSOMNIA

REACTIONS (3)
  - Expired drug administered [Unknown]
  - Drug ineffective [Not Recovered/Not Resolved]
  - Insomnia [Not Recovered/Not Resolved]
